FAERS Safety Report 18916110 (Version 1)
Quarter: 2021Q1

REPORT INFORMATION
  Report Type: Spontaneous
  Country: US (occurrence: US)
  Receive Date: 20210219
  Receipt Date: 20210219
  Transmission Date: 20210420
  Serious: No
  Sender: FDA-Public Use
  Company Number: US-THERAPEUTICSMD-2020TMD05158

PATIENT
  Age: 61 Year
  Sex: Female
  Weight: 57.14 kg

DRUGS (4)
  1. BIJUVA [Suspect]
     Active Substance: ESTRADIOL\PROGESTERONE
     Indication: INSOMNIA
     Dosage: 1/100 MG (1 CAPSULE), 1X/DAY
     Route: 048
     Dates: start: 202010
  2. BIJUVA [Suspect]
     Active Substance: ESTRADIOL\PROGESTERONE
     Indication: NIGHT SWEATS
  3. UNSPECIFIED ALLERGY MEDICATIONS [Concomitant]
  4. TESTOSTERONE. [Concomitant]
     Active Substance: TESTOSTERONE
     Dosage: LOW DOSE

REACTIONS (1)
  - Headache [Recovering/Resolving]

NARRATIVE: CASE EVENT DATE: 202010
